FAERS Safety Report 15926471 (Version 2)
Quarter: 2019Q1

REPORT INFORMATION
  Report Type: Spontaneous
  Country: US (occurrence: US)
  Receive Date: 20190205
  Receipt Date: 20190219
  Transmission Date: 20190417
  Serious: No
  Sender: FDA-Public Use
  Company Number: US-ALLERGAN-1849044US

PATIENT
  Sex: Female

DRUGS (1)
  1. BOTOX COSMETIC [Suspect]
     Active Substance: ONABOTULINUMTOXINA
     Indication: SKIN WRINKLING
     Dosage: 32 UNITS, SINGLE
     Route: 030
     Dates: start: 201809, end: 201809

REACTIONS (6)
  - Headache [Recovered/Resolved]
  - Muscle spasms [Unknown]
  - Pain [Unknown]
  - Neck pain [Recovered/Resolved]
  - Off label use [Unknown]
  - Drug ineffective [Unknown]
